FAERS Safety Report 8445593-2 (Version None)
Quarter: 2012Q2

REPORT INFORMATION
  Report Type: 
  Country: None (occurrence: None)
  Receive Date: 20120618
  Receipt Date: 20120608
  Transmission Date: 20120825
  Serious: Yes (Other)
  Sender: FDA-Public Use
  Company Number: PHHY2012TR050845

PATIENT
  Age: 31 Year
  Sex: Male

DRUGS (5)
  1. ARTIFICIAL TEARS [Concomitant]
     Indication: DRY EYE
  2. DICLOFENAC SODIUM [Suspect]
     Indication: DRY EYE
     Dosage: 0.1 %, 5 TIMES DAILY FOR 1 MONTH
     Route: 061
  3. DEXAMETHASONE [Concomitant]
  4. OFLOXACIN [Concomitant]
  5. CARBOXYMETHYLCELLULOSE SODIUM [Concomitant]

REACTIONS (8)
  - CORNEAL PERFORATION [None]
  - ULCERATIVE KERATITIS [None]
  - CORNEAL THINNING [None]
  - CORNEAL OPACITY [None]
  - FLAT ANTERIOR CHAMBER OF EYE [None]
  - EYE PAIN [None]
  - BLINDNESS UNILATERAL [None]
  - OCULAR HYPERAEMIA [None]
